FAERS Safety Report 16706173 (Version 1)
Quarter: 2019Q3

REPORT INFORMATION
  Report Type: Spontaneous
  Country: US (occurrence: US)
  Receive Date: 20190815
  Receipt Date: 20190815
  Transmission Date: 20191004
  Serious: No
  Sender: FDA-Public Use
  Company Number: US-PFIZER INC-2019347710

PATIENT
  Age: 55 Year
  Sex: Female
  Weight: 137 kg

DRUGS (1)
  1. LYRICA [Suspect]
     Active Substance: PREGABALIN
     Indication: SPINAL STENOSIS
     Dosage: 150 MG, 2X/DAY
     Route: 048

REACTIONS (2)
  - Drug ineffective [Unknown]
  - Product dispensing error [Unknown]
